FAERS Safety Report 12110352 (Version 2)
Quarter: 2018Q2

REPORT INFORMATION
  Report Type: Spontaneous
  Country: JP (occurrence: JP)
  Receive Date: 20160224
  Receipt Date: 20180601
  Transmission Date: 20180711
  Serious: Yes (Other)
  Sender: FDA-Public Use
  Company Number: JP-SA-2016SA034418

PATIENT
  Age: 55 Year
  Sex: Male

DRUGS (5)
  1. FLUOROURACIL. [Suspect]
     Active Substance: FLUOROURACIL
     Indication: PANCREATIC CARCINOMA METASTATIC
     Dosage: BOLUS
     Dates: start: 201401
  2. ELPLAT [Suspect]
     Active Substance: OXALIPLATIN
     Indication: PANCREATIC CARCINOMA METASTATIC
     Dosage: UNK UNK,QD
     Route: 041
     Dates: start: 201401
  3. FLUOROURACIL. [Suspect]
     Active Substance: FLUOROURACIL
     Dosage: CONTINUOUS INFUSION
     Dates: start: 201401
  4. CALCIUM LEVOFOLINATE [Suspect]
     Active Substance: LEVOLEUCOVORIN CALCIUM
     Dosage: UNK
     Dates: start: 201401
  5. CAMPTO [Suspect]
     Active Substance: IRINOTECAN
     Indication: PANCREATIC CARCINOMA METASTATIC
     Dosage: UNK UNK,QD
     Route: 041
     Dates: start: 201401

REACTIONS (4)
  - Diarrhoea [Unknown]
  - Decreased appetite [Unknown]
  - Neutrophil count decreased [Unknown]
  - Hyperkalaemia [Unknown]
